FAERS Safety Report 4280002-9 (Version None)
Quarter: 2004Q1

REPORT INFORMATION
  Report Type: 
  Country: None (occurrence: None)
  Receive Date: 20040126
  Receipt Date: 20040115
  Transmission Date: 20041129
  Serious: Yes (Death)
  Sender: FDA-Public Use
  Company Number: 2003AP04575

PATIENT
  Age: 61 Year
  Sex: Female

DRUGS (14)
  1. ARIMIDEX [Suspect]
     Indication: BREAST CANCER
     Dosage: 1 MG DAILY PO
     Route: 048
     Dates: start: 20031128
  2. TAMOXIFEN [Concomitant]
  3. ADRIAMYCIN PFS [Concomitant]
  4. ENDOXAN [Concomitant]
  5. PREDONINE [Concomitant]
  6. NORVASC [Concomitant]
  7. GASTER [Concomitant]
  8. CACO3 [Concomitant]
  9. MUCOSTA [Concomitant]
  10. ZYLORIC [Concomitant]
  11. DIGOSIN [Concomitant]
  12. ACECOL [Concomitant]
  13. TENORMIN [Concomitant]
  14. ROCALTOROL [Concomitant]

REACTIONS (8)
  - GENERAL PHYSICAL HEALTH DETERIORATION [None]
  - HAEMODIALYSIS [None]
  - MALIGNANT NEOPLASM PROGRESSION [None]
  - NASOPHARYNGITIS [None]
  - NEUTROPENIA [None]
  - PNEUMONIA [None]
  - RENAL IMPAIRMENT [None]
  - SEPSIS [None]
